FAERS Safety Report 14220677 (Version 1)
Quarter: 2017Q4

REPORT INFORMATION
  Report Type: Report from Study
  Country: US (occurrence: US)
  Receive Date: 20171124
  Receipt Date: 20171124
  Transmission Date: 20180321
  Serious: Yes (Hospitalization, Other)
  Sender: FDA-Public Use
  Company Number: US-PFIZER INC-2017497773

PATIENT
  Age: 28 Year
  Sex: Female

DRUGS (6)
  1. ABILIFY [Suspect]
     Active Substance: ARIPIPRAZOLE
     Indication: BIPOLAR DISORDER
     Dosage: 10 MG, UNK
     Dates: start: 20100416
  2. ELAVIL [Suspect]
     Active Substance: AMITRIPTYLINE HYDROCHLORIDE
     Indication: BIPOLAR DISORDER
     Dosage: 75 MG, UNK
     Dates: start: 20100416
  3. LITHIUM. [Suspect]
     Active Substance: LITHIUM
     Indication: BIPOLAR DISORDER
     Dosage: 900 MG, UNK
     Dates: start: 20100416
  4. EFFEXOR [Suspect]
     Active Substance: VENLAFAXINE HYDROCHLORIDE
     Indication: BIPOLAR DISORDER
     Dosage: 300 MG, UNK
     Dates: start: 20100416
  5. LAMICTAL [Suspect]
     Active Substance: LAMOTRIGINE
     Indication: BIPOLAR DISORDER
     Dosage: 300 MG, UNK
     Dates: start: 20100416
  6. KLONOPIN [Suspect]
     Active Substance: CLONAZEPAM
     Indication: ANXIETY
     Dosage: 1 DF (1 DF=1 TO 2 MG)
     Dates: start: 20100416

REACTIONS (4)
  - Perinatal depression [Recovered/Resolved]
  - Gestational hypertension [Recovered/Resolved]
  - Pre-eclampsia [Recovered/Resolved]
  - Prolonged labour [Recovered/Resolved]

NARRATIVE: CASE EVENT DATE: 20101227
